FAERS Safety Report 18268702 (Version 1)
Quarter: 2020Q3

REPORT INFORMATION
  Report Type: Spontaneous
  Country: US (occurrence: US)
  Receive Date: 20200915
  Receipt Date: 20200915
  Transmission Date: 20201103
  Serious: Yes (Other)
  Sender: FDA-Public Use
  Company Number: US-AKORN PHARMACEUTICALS-2020AKN01163

PATIENT
  Sex: Male

DRUGS (1)
  1. MYORISAN [Suspect]
     Active Substance: ISOTRETINOIN
     Dosage: UNK
     Dates: start: 20200817, end: 20200901

REACTIONS (3)
  - Blood urine present [Unknown]
  - Epistaxis [Unknown]
  - Blindness transient [Unknown]

NARRATIVE: CASE EVENT DATE: 2020
